FAERS Safety Report 6108345-4 (Version None)
Quarter: 2009Q1

REPORT INFORMATION
  Report Type: 
  Country: None (occurrence: None)
  Receive Date: 20090309
  Receipt Date: 20090304
  Transmission Date: 20090719
  Serious: Yes (Other)
  Sender: FDA-Public Use
  Company Number: US-CELGENEUS-163-21880-08051109

PATIENT
  Sex: Female

DRUGS (3)
  1. REVLIMID [Suspect]
     Indication: MULTIPLE MYELOMA
     Route: 048
     Dates: start: 20080414, end: 20080516
  2. REVLIMID [Suspect]
     Route: 048
     Dates: start: 20080601
  3. REVLIMID [Suspect]
     Route: 048
     Dates: start: 20090112

REACTIONS (2)
  - BLOOD HUMAN CHORIONIC GONADOTROPIN ABNORMAL [None]
  - BLOOD HUMAN CHORIONIC GONADOTROPIN INCREASED [None]
